FAERS Safety Report 8018018-9 (Version None)
Quarter: 2012Q1

REPORT INFORMATION
  Report Type: 
  Country: None (occurrence: None)
  Receive Date: 20120103
  Receipt Date: 20111227
  Transmission Date: 20120608
  Serious: Yes (Other)
  Sender: FDA-Public Use
  Company Number: US-JNJFOC-20111211789

PATIENT
  Age: 16 Year
  Sex: Female

DRUGS (3)
  1. REMICADE [Suspect]
     Indication: CROHN'S DISEASE
     Dosage: 400 MG
     Route: 042
     Dates: start: 20070101
  2. IRON [Concomitant]
     Route: 065
  3. MULTI-VITAMINS [Concomitant]
     Route: 065

REACTIONS (3)
  - HAEMATURIA [None]
  - RENAL FUNCTION TEST ABNORMAL [None]
  - PROTEINURIA [None]
